FAERS Safety Report 9299352 (Version 5)
Quarter: 2014Q1

REPORT INFORMATION
  Report Type: Spontaneous
  Country: US (occurrence: US)
  Receive Date: 20130520
  Receipt Date: 20140117
  Transmission Date: 20141002
  Serious: Yes (Hospitalization, Other)
  Sender: FDA-Public Use
  Company Number: US-B.I. PHARMACEUTICALS,INC./RIDGEFIELD-2013-BI-13605BP

PATIENT
  Age: 68 Year
  Sex: Male
  Weight: 113.4 kg

DRUGS (32)
  1. PRADAXA [Suspect]
     Indication: ANTICOAGULANT THERAPY
     Dosage: 300 MG
     Route: 048
     Dates: start: 20110429, end: 20120617
  2. PRADAXA [Suspect]
     Indication: ATRIAL FIBRILLATION
  3. AMLODIPINE [Concomitant]
     Dosage: 5 MG
     Dates: start: 2008, end: 2013
  4. ANDRODERM [Concomitant]
     Dosage: 5 MG
     Dates: start: 2008, end: 2013
  5. CRESTOR [Concomitant]
     Dosage: 10 MG
     Dates: start: 2008, end: 2013
  6. FUROSEMIDE [Concomitant]
     Dosage: 40 MG
     Dates: start: 2010, end: 2013
  7. GLIPIZIDE [Concomitant]
     Dosage: 5 MG
     Route: 048
     Dates: start: 2008, end: 2013
  8. HUMULIN INSULIN [Concomitant]
     Dates: start: 2008, end: 2013
  9. KLOR-CON [Concomitant]
     Dosage: 20 MEQ
     Dates: start: 2010, end: 2013
  10. LISINOPRIL [Concomitant]
     Dosage: 30 MG
     Dates: start: 2010, end: 2013
  11. METFORMIN [Concomitant]
     Dosage: 500 MG
     Dates: start: 2010, end: 2013
  12. TOPROL XL [Concomitant]
     Dosage: 100 MG
     Dates: start: 2008, end: 2013
  13. TRAMADOL [Concomitant]
     Dosage: 50 MG
     Dates: start: 2008, end: 2013
  14. ASPIRIN [Concomitant]
     Dosage: 162 MG
  15. ALBUTEROL [Concomitant]
     Indication: WHEEZING
  16. DIAZEPAM [Concomitant]
     Indication: ANXIETY
  17. FLORANEX [Concomitant]
     Route: 048
  18. GABAPENTIN [Concomitant]
     Dosage: 600 MG
     Route: 048
  19. INSULIN LEVEMIR [Concomitant]
     Dosage: 20 U
     Route: 058
  20. INSULIN NOVOLOG [Concomitant]
     Route: 058
  21. LIBRIUM [Concomitant]
     Dosage: 10 MG
  22. LOPID [Concomitant]
     Dosage: 1200 MG
     Route: 048
  23. MULTIVITAMIN [Concomitant]
  24. THIAMINE [Concomitant]
     Dosage: 100 MG
  25. VITAMIN B6 [Concomitant]
     Dosage: 50 MG
  26. DULCOLAX [Concomitant]
     Route: 054
  27. PEPTO BISMOL [Concomitant]
     Indication: ABDOMINAL DISCOMFORT
     Route: 048
  28. LOVENOX [Concomitant]
     Dosage: 40 MG
     Route: 058
     Dates: end: 20120617
  29. NORCO [Concomitant]
  30. ZYVOX [Concomitant]
     Route: 042
  31. ERTAPENEM [Concomitant]
     Dosage: 1 G
     Route: 042
  32. PIPERACILIN-TAZOBACTAM [Concomitant]
     Dosage: 9 G
     Route: 042

REACTIONS (8)
  - Haemorrhagic anaemia [Unknown]
  - Arthritis bacterial [Unknown]
  - Haematoma infection [Unknown]
  - Thrombocytopenia [Unknown]
  - Gastrointestinal haemorrhage [Recovered/Resolved]
  - Fall [Unknown]
  - Laceration [Unknown]
  - Tendon rupture [Unknown]
